FAERS Safety Report 5894122-6 (Version None)
Quarter: 2008Q3

REPORT INFORMATION
  Report Type: 
  Country: None (occurrence: None)
  Receive Date: 20080923
  Receipt Date: 20080114
  Transmission Date: 20090109
  Serious: No
  Sender: FDA-Public Use
  Company Number: US-ASTRAZENECA-2008UW01025

PATIENT
  Age: 50 Year
  Sex: Female
  Weight: 81.6 kg

DRUGS (9)
  1. SEROQUEL [Suspect]
     Route: 048
     Dates: start: 20070801
  2. LEVOTHYROXINE SODIUM [Concomitant]
  3. ZOCOR [Concomitant]
  4. PROZAC [Concomitant]
  5. KLONOPIN [Concomitant]
  6. VICODIN [Concomitant]
  7. ACTOS [Concomitant]
  8. GLUCOPHAGE [Concomitant]
  9. ABILITY [Concomitant]

REACTIONS (2)
  - ARTHRALGIA [None]
  - DIABETES MELLITUS INADEQUATE CONTROL [None]
